FAERS Safety Report 12419933 (Version 1)
Quarter: 2016Q2

REPORT INFORMATION
  Report Type: Spontaneous
  Country: DE (occurrence: DE)
  Receive Date: 20160531
  Receipt Date: 20160531
  Transmission Date: 20160815
  Serious: Yes (Other)
  Sender: FDA-Public Use
  Company Number: DE-BAYER-2016-103608

PATIENT
  Age: 57 Year
  Sex: Male

DRUGS (1)
  1. STIVARGA [Suspect]
     Active Substance: REGORAFENIB
     Indication: GASTROINTESTINAL STROMAL TUMOUR
     Dosage: UNK
     Dates: start: 201504, end: 201512

REACTIONS (6)
  - Diarrhoea [None]
  - Metastases to lymph nodes [None]
  - Muscle spasms [None]
  - Gastrointestinal stromal tumour [None]
  - Palmar-plantar erythrodysaesthesia syndrome [None]
  - Nausea [None]

NARRATIVE: CASE EVENT DATE: 201504
